FAERS Safety Report 10311941 (Version 6)
Quarter: 2014Q4

REPORT INFORMATION
  Report Type: Report from Study
  Country: US (occurrence: US)
  Receive Date: 20140717
  Receipt Date: 20141008
  Transmission Date: 20150528
  Serious: Yes (Death, Hospitalization, Other)
  Sender: FDA-Public Use
  Company Number: US-ALEXION-A201402821

PATIENT

DRUGS (1)
  1. SOLIRIS [Suspect]
     Active Substance: ECULIZUMAB
     Indication: HAEMOLYTIC URAEMIC SYNDROME
     Dosage: 900 MG, QW
     Route: 042
     Dates: start: 20140701, end: 20140722

REACTIONS (7)
  - Pneumonia [Fatal]
  - Haemoglobin abnormal [Unknown]
  - Surgery [Unknown]
  - Rash [Unknown]
  - Haematocrit abnormal [Unknown]
  - Drug ineffective [Not Recovered/Not Resolved]
  - Platelet disorder [Unknown]

NARRATIVE: CASE EVENT DATE: 20140711
